FAERS Safety Report 4562187-X (Version None)
Quarter: 2005Q1

REPORT INFORMATION
  Report Type: 
  Country: None (occurrence: None)
  Receive Date: 20050124
  Receipt Date: 20050118
  Transmission Date: 20050727
  Serious: Yes (Death)
  Sender: FDA-Public Use
  Company Number: 2005-00011

PATIENT
  Age: 66 Year
  Sex: Female

DRUGS (3)
  1. INTEGRILIN [Suspect]
     Indication: CORONARY ANGIOPLASTY
     Dosage: SEE IMAGE
     Route: 040
     Dates: start: 20041220, end: 20041220
  2. INTEGRILIN [Suspect]
     Indication: CORONARY ANGIOPLASTY
     Dosage: SEE IMAGE
     Route: 040
     Dates: start: 20041220, end: 20041220
  3. PLAVIX [Concomitant]

REACTIONS (8)
  - BLOOD PRESSURE DECREASED [None]
  - BRADYCARDIA [None]
  - CARDIAC PERFORATION [None]
  - CARDIAC PROCEDURE COMPLICATION [None]
  - CARDIAC TAMPONADE [None]
  - CARDIOGENIC SHOCK [None]
  - COAGULATION TIME PROLONGED [None]
  - HAEMORRHAGE [None]
